FAERS Safety Report 20319743 (Version 1)
Quarter: 2022Q1

REPORT INFORMATION
  Report Type: Spontaneous
  Country: US (occurrence: US)
  Receive Date: 20220111
  Receipt Date: 20220111
  Transmission Date: 20220424
  Serious: No
  Sender: FDA-Public Use
  Company Number: US-ASPEN-GLO2021US009900

PATIENT

DRUGS (1)
  1. BENZTROPINE MESYLATE [Suspect]
     Active Substance: BENZTROPINE MESYLATE
     Indication: Symptomatic treatment
     Dosage: UNK
     Route: 048

REACTIONS (4)
  - Hypertrichosis [Unknown]
  - Dry mouth [Unknown]
  - Nausea [Unknown]
  - Constipation [Unknown]
